FAERS Safety Report 8873676 (Version 1)
Quarter: 2012Q4

REPORT INFORMATION
  Report Type: 
  Country: US (occurrence: US)
  Receive Date: 20121023
  Receipt Date: 20121023
  Transmission Date: 20130627
  Serious: No
  Sender: FDA-Public Use
  Company Number: US-ASTELLAS-2012US005070

PATIENT
  Age: 73 Year
  Sex: Male

DRUGS (34)
  1. LEXISCAN [Suspect]
     Indication: SCAN MYOCARDIAL PERFUSION
     Dosage: 0.4 mg, Total Dose
     Route: 042
     Dates: start: 20120514, end: 20120514
  2. LEXISCAN [Suspect]
     Dosage: UNK
     Route: 042
     Dates: start: 20120514, end: 20120514
  3. ASPIRIN [Suspect]
     Indication: PRODUCT USED FOR UNKNOWN INDICATION
     Dosage: 81 mg, UID/QD, in the morning.
     Route: 065
  4. COUMADIN                           /00014802/ [Suspect]
     Indication: PRODUCT USED FOR UNKNOWN INDICATION
     Dosage: 2 mg 4 times a weeek, alternating doses
     Route: 065
  5. COUMADIN                           /00014802/ [Suspect]
     Dosage: 1mg 3 times a week
     Route: 065
  6. NEXIUM                             /01479302/ [Concomitant]
     Indication: PRODUCT USED FOR UNKNOWN INDICATION
     Dosage: 40 mg, bid, One in the morning and one in afternoon
     Route: 065
  7. BETHANECHOL [Concomitant]
     Indication: PRODUCT USED FOR UNKNOWN INDICATION
     Dosage: 25 mg, bid, before breakfast and supper, up to 4 daily as needed.
     Route: 065
  8. DIGOXIN [Concomitant]
     Indication: PRODUCT USED FOR UNKNOWN INDICATION
     Dosage: 0.125 mg, UID/QD, take one every morning.
     Route: 065
  9. RYTHMOL                            /00546301/ [Concomitant]
     Indication: PRODUCT USED FOR UNKNOWN INDICATION
     Dosage: 425 mg, Q12 hours
     Route: 065
  10. ZETIA [Concomitant]
     Indication: BLOOD CHOLESTEROL
     Dosage: 10 mg, UID/QD with evening meal
     Route: 065
  11. LISINOPRIL [Concomitant]
     Indication: PROPHYLAXIS
     Dosage: 5 mg, UID/QD
     Route: 065
  12. ULORIC [Concomitant]
     Indication: PRODUCT USED FOR UNKNOWN INDICATION
     Dosage: 40 mg, Unknown/D
     Route: 065
     Dates: start: 20110203
  13. OXYCONTIN [Concomitant]
     Indication: PRODUCT USED FOR UNKNOWN INDICATION
     Dosage: 20 mg, Q12 hours
     Route: 065
  14. PREDNISONE [Concomitant]
     Indication: BLOOD CORTISOL
     Dosage: 5 mg, UID/QD
     Route: 065
  15. OXYCODONE [Concomitant]
     Indication: PAIN
     Dosage: 5 mg, for break-through pain or Q6hours, PRN
  16. PROZAC [Concomitant]
     Indication: PRODUCT USED FOR UNKNOWN INDICATION
     Dosage: 40 mg, UID/QD, in the morning.
     Route: 065
  17. TIMOLOL [Concomitant]
     Indication: PRODUCT USED FOR UNKNOWN INDICATION
     Dosage: 0.5 mg, One drop in each eye.
     Route: 047
  18. MIRALAX                            /00754501/ [Concomitant]
     Indication: PRODUCT USED FOR UNKNOWN INDICATION
     Dosage: 2 DF, bid, after breakfast and after dinner
     Route: 065
  19. CALCIUM                            /02801801/ [Concomitant]
     Indication: PRODUCT USED FOR UNKNOWN INDICATION
     Dosage: 1200 mg, UID/QD
     Route: 065
  20. LOVAZA [Concomitant]
     Indication: PRODUCT USED FOR UNKNOWN INDICATION
     Dosage: 2 g, bid, 2 in the morning and 2 in the evening
     Route: 065
  21. VITAMIN D /00107901/ [Concomitant]
     Indication: PRODUCT USED FOR UNKNOWN INDICATION
     Dosage: 50000 U, Weekly, on Mondays
     Route: 065
  22. VITAMIN B-12 [Concomitant]
     Indication: PRODUCT USED FOR UNKNOWN INDICATION
     Dosage: 1000 ug, UID/QD
     Route: 065
  23. PROMETHAZINE [Concomitant]
     Indication: NAUSEA
     Dosage: UNK
     Route: 065
  24. CARAFATE [Concomitant]
     Indication: PRODUCT USED FOR UNKNOWN INDICATION
     Dosage: 1 g, prn
     Route: 065
  25. ACICLOVIR [Concomitant]
     Indication: STOMATITIS
     Dosage: 400 mg, prn
  26. OXYGEN [Concomitant]
     Indication: PRODUCT USED FOR UNKNOWN INDICATION
     Dosage: 2 l, per minute
     Route: 065
     Dates: start: 20110610
  27. EFFEXOR [Concomitant]
     Indication: PRODUCT USED FOR UNKNOWN INDICATION
     Dosage: 150 mg, UID/QD with breakfast
  28. METOPROLOL [Concomitant]
     Indication: ATRIAL FIBRILLATION
     Dosage: 25 mg, UID/QD
     Route: 065
     Dates: start: 20120329, end: 20120418
  29. METOPROLOL [Concomitant]
     Dosage: 50 mg, UID/QD
     Route: 065
     Dates: start: 20120418
  30. MECLIZINE HCL [Concomitant]
     Indication: PRODUCT USED FOR UNKNOWN INDICATION
     Dosage: 25 mg, prn
     Route: 065
  31. NAMENDA [Concomitant]
     Indication: PRODUCT USED FOR UNKNOWN INDICATION
     Dosage: 10 mg, bid
     Route: 065
  32. LUNESTA [Concomitant]
     Indication: PRODUCT USED FOR UNKNOWN INDICATION
     Dosage: 3 mg, prn
     Route: 065
  33. PEPCID                             /00706001/ [Concomitant]
     Indication: PRODUCT USED FOR UNKNOWN INDICATION
     Dosage: UNK
     Route: 065
  34. TESTOSTERONE [Concomitant]
     Indication: PRODUCT USED FOR UNKNOWN INDICATION
     Dosage: 100 mg, Q3W
     Route: 065

REACTIONS (6)
  - Drug administration error [Unknown]
  - Injection site extravasation [Recovered/Resolved]
  - Contusion [Recovering/Resolving]
  - Pain in extremity [Recovered/Resolved]
  - Blood pressure increased [Recovered/Resolved]
  - Heart rate increased [Recovered/Resolved]
